FAERS Safety Report 25678256 (Version 2)
Quarter: 2025Q4

REPORT INFORMATION
  Report Type: Spontaneous
  Country: CA (occurrence: CA)
  Receive Date: 20250813
  Receipt Date: 20251020
  Transmission Date: 20260118
  Serious: Yes (Life-Threatening, Hospitalization, Other)
  Sender: NOVARTIS
  Company Number: CA-002147023-NVSC2025CA127137

PATIENT
  Age: 63 Year
  Sex: Female
  Weight: 48 kg

DRUGS (4)
  1. TEGRETOL XR [Suspect]
     Active Substance: CARBAMAZEPINE
     Indication: Partial seizures
     Dosage: 400 MG, BID
     Route: 048
  2. AMIODARONE HYDROCHLORIDE [Suspect]
     Active Substance: AMIODARONE HYDROCHLORIDE
     Indication: Atrial fibrillation
     Dosage: 36 MG
     Route: 042
  3. AMIODARONE [Suspect]
     Active Substance: AMIODARONE
     Indication: Atrial fibrillation
     Dosage: 200 MG, BID (TEVA)
     Route: 048
  4. DILANTIN INFATABS [Suspect]
     Active Substance: PHENYTOIN
     Indication: Partial seizures
     Dosage: 150 MG, QD (CHEWABLE)
     Route: 048

REACTIONS (4)
  - Accidental poisoning [Recovering/Resolving]
  - Altered state of consciousness [Recovering/Resolving]
  - Diplopia [Recovering/Resolving]
  - Dyskinesia [Recovering/Resolving]
